FAERS Safety Report 4485958-7 (Version None)
Quarter: 2004Q3

REPORT INFORMATION
  Report Type: 
  Country: None (occurrence: None)
  Receive Date: 20040921
  Receipt Date: 20040427
  Transmission Date: 20050211
  Serious: Yes (Death, Hospitalization)
  Sender: FDA-Public Use
  Company Number: 163-20785-04040697 (0)

PATIENT
  Age: 64 Year
  Sex: Female
  Weight: 83.4619 kg

DRUGS (4)
  1. THALOMID [Suspect]
     Indication: SMALL CELL LUNG CANCER STAGE UNSPECIFIED
     Dosage: 200 MG, QHS, ORAL
     Route: 048
     Dates: start: 20040318, end: 20040323
  2. TYLENOL [Concomitant]
  3. MAXZIDE [Concomitant]
  4. MULTIVITAMIN [Concomitant]

REACTIONS (3)
  - DEATH [None]
  - DISEASE PROGRESSION [None]
  - DYSPNOEA [None]
